FAERS Safety Report 17087305 (Version 1)
Quarter: 2019Q4

REPORT INFORMATION
  Report Type: Spontaneous
  Country: PT (occurrence: PT)
  Receive Date: 20191128
  Receipt Date: 20191128
  Transmission Date: 20200122
  Serious: Yes (Other)
  Sender: FDA-Public Use
  Company Number: PT-PFIZER INC-2019512996

PATIENT
  Age: 40 Year
  Sex: Female

DRUGS (1)
  1. XELJANZ [Suspect]
     Active Substance: TOFACITINIB CITRATE
     Indication: AUTOIMMUNE DISORDER
     Dosage: UNK
     Route: 048
     Dates: start: 201907, end: 201911

REACTIONS (4)
  - Product use in unapproved indication [Unknown]
  - Depression [Unknown]
  - Off label use [Unknown]
  - Suicidal ideation [Unknown]
